FAERS Safety Report 20804285 (Version 1)
Quarter: 2022Q2

REPORT INFORMATION
  Report Type: Spontaneous
  Country: US (occurrence: US)
  Receive Date: 20220509
  Receipt Date: 20220509
  Transmission Date: 20220721
  Serious: No
  Sender: FDA-Public Use
  Company Number: US-PFIZER INC-202200655292

PATIENT
  Age: 56 Year
  Sex: Female

DRUGS (1)
  1. PAXLOVID [Suspect]
     Active Substance: NIRMATRELVIR\RITONAVIR
     Indication: COVID-19 treatment
     Dosage: 1 NIRMATRELVIR AND 2 RITONAVIR FOR JUST ONE TIME/[PF-07321332 150 MG]/[RITONAVIR 200 MG]

REACTIONS (1)
  - Incorrect dose administered [Unknown]
